FAERS Safety Report 7230815-6 (Version None)
Quarter: 2011Q1

REPORT INFORMATION
  Report Type: 
  Country: None (occurrence: None)
  Receive Date: 20110107
  Receipt Date: 20101208
  Transmission Date: 20110831
  Serious: Yes (Hospitalization, Other)
  Sender: FDA-Public Use
  Company Number: 1000017659

PATIENT
  Age: 73 Year
  Sex: Male

DRUGS (6)
  1. CITALOPRAM (CITALOPRAM HYDROBROMIDE) [Suspect]
     Indication: DEPRESSION
     Dosage: 20 MG (20 MG,1 IN 1 D), ORAL
     Route: 048
     Dates: start: 20040309, end: 20040310
  2. SORTIS (ATORVASTATIN) (ATORVASTATIN) [Concomitant]
  3. ASS (ACETYLSALICYLIC ACID) (ACETYLSALICYLIC ACID) [Concomitant]
  4. BISOPROLOL FUMARATE [Concomitant]
  5. DELIX (RAMIPRIL) (RAMIPRIL) [Concomitant]
  6. ARTHROTEC (DICLOFENAC, MISOPROSTOL) (DICLOFENAC, MISOPROSTOL) [Concomitant]

REACTIONS (5)
  - DEPRESSION [None]
  - CONDITION AGGRAVATED [None]
  - DYSTONIA [None]
  - RESTLESSNESS [None]
  - SUICIDAL IDEATION [None]
